FAERS Safety Report 9581478 (Version 2)
Quarter: 2013Q4

REPORT INFORMATION
  Report Type: Spontaneous
  Country: BR (occurrence: BR)
  Receive Date: 20131002
  Receipt Date: 20131002
  Transmission Date: 20140711
  Serious: No
  Sender: FDA-Public Use
  Company Number: PHHY2013BR088566

PATIENT
  Sex: Female
  Weight: 50 kg

DRUGS (3)
  1. RITALINA [Suspect]
     Dosage: UNK UKN, UNK
     Dates: start: 2010
  2. RITALIN LA [Suspect]
     Indication: ATTENTION DEFICIT/HYPERACTIVITY DISORDER
     Dosage: UNK UKN, UNK
     Route: 048
     Dates: start: 2011
  3. RITALIN LA [Suspect]
     Dosage: 1 DF, QD
     Route: 048

REACTIONS (5)
  - Frustration [Recovered/Resolved]
  - Screaming [Recovered/Resolved]
  - Irritability [Recovered/Resolved]
  - Erythema [Recovered/Resolved]
  - Agitation [Recovered/Resolved]
